FAERS Safety Report 26053376 (Version 1)
Quarter: 2025Q4

REPORT INFORMATION
  Report Type: Spontaneous
  Country: GB (occurrence: GB)
  Receive Date: 20251117
  Receipt Date: 20251117
  Transmission Date: 20260118
  Serious: Yes (Hospitalization, Other)
  Sender: SLATE RUN
  Company Number: GB-SLATERUN-2025SRLIT00219

PATIENT
  Age: 86 Year
  Sex: Female

DRUGS (24)
  1. LEUCOVORIN CALCIUM [Suspect]
     Active Substance: LEUCOVORIN CALCIUM
     Indication: Palliative care
     Dosage: 1 ST AND 2 ND CYCLE
     Route: 065
     Dates: start: 202501
  2. LEUCOVORIN CALCIUM [Suspect]
     Active Substance: LEUCOVORIN CALCIUM
     Dosage: 3 RD CYCLE
     Route: 065
     Dates: start: 202502
  3. LEUCOVORIN CALCIUM [Suspect]
     Active Substance: LEUCOVORIN CALCIUM
     Dosage: 4TH CYCLE 75% FOLFOX WITH 5-FU BOLUS
     Route: 065
     Dates: start: 202503
  4. LEUCOVORIN CALCIUM [Suspect]
     Active Substance: LEUCOVORIN CALCIUM
     Dosage: CYCLES 5 AND 6 AT 75%
     Route: 065
     Dates: start: 202504, end: 202506
  5. FLUOROURACIL [Suspect]
     Active Substance: FLUOROURACIL
     Indication: Palliative care
     Dosage: 1 ST AND 2 ND CYCLE
     Route: 065
     Dates: start: 202501
  6. FLUOROURACIL [Suspect]
     Active Substance: FLUOROURACIL
     Dosage: 3RD CYCLE
     Route: 065
     Dates: start: 202502
  7. FLUOROURACIL [Suspect]
     Active Substance: FLUOROURACIL
     Dosage: 4TH CYCLE 75% FOLFOX WITH 5-FU BOLUS
     Route: 065
     Dates: start: 202503
  8. FLUOROURACIL [Suspect]
     Active Substance: FLUOROURACIL
     Dosage: AT 75% WITHOUT A 5-FU BOLUS FROM CYCLE 5 AN D6
     Route: 065
     Dates: start: 202504
  9. OXALIPLATIN [Suspect]
     Active Substance: OXALIPLATIN
     Indication: Palliative care
     Dosage: 1 ST AND 2 ND CYCLE
     Route: 065
     Dates: start: 202501
  10. OXALIPLATIN [Suspect]
     Active Substance: OXALIPLATIN
     Dosage: 3RD CYCLE
     Route: 065
     Dates: start: 202502
  11. OXALIPLATIN [Suspect]
     Active Substance: OXALIPLATIN
     Dosage: 4TH CYCLE 75% FOLFOX WITH 5-FU BOLUS
     Route: 065
     Dates: start: 202503
  12. OXALIPLATIN [Suspect]
     Active Substance: OXALIPLATIN
     Dosage: AT 75% WITHOUT A 5-FU BOLUS FROM CYCLE 5 AND 6
     Route: 065
     Dates: start: 202504
  13. NIVOLUMAB [Suspect]
     Active Substance: NIVOLUMAB
     Indication: Palliative care
     Dosage: 1 ST AND 2 ND CYCLE
     Route: 065
     Dates: start: 202501
  14. NIVOLUMAB [Suspect]
     Active Substance: NIVOLUMAB
     Dosage: 3RD CYCLE
     Route: 065
     Dates: start: 202502
  15. NIVOLUMAB [Suspect]
     Active Substance: NIVOLUMAB
     Dosage: 4TH CYCLE
     Route: 065
     Dates: start: 202503
  16. MORPHINE SULFATE [Concomitant]
     Active Substance: MORPHINE SULFATE
     Indication: Product used for unknown indication
     Route: 065
  17. OMEPRAZOLE [Concomitant]
     Active Substance: OMEPRAZOLE
     Indication: Product used for unknown indication
     Route: 065
  18. AMLODIPINE [Concomitant]
     Active Substance: AMLODIPINE BESYLATE
     Indication: Product used for unknown indication
     Route: 065
  19. SENNA [Concomitant]
     Active Substance: SENNOSIDES
     Indication: Product used for unknown indication
     Route: 065
  20. DIHYDROCODEINE [Concomitant]
     Active Substance: DIHYDROCODEINE
     Indication: Product used for unknown indication
     Route: 065
  21. BECLOMETHASONE DIPROPIONATE [Concomitant]
     Active Substance: BECLOMETHASONE DIPROPIONATE
     Indication: Product used for unknown indication
     Route: 065
  22. DEXAMETHASONE [Concomitant]
     Active Substance: DEXAMETHASONE
     Indication: Product used for unknown indication
     Route: 065
  23. NITROFURANTOIN [Concomitant]
     Active Substance: NITROFURANTOIN
     Indication: Urinary tract infection
     Route: 048
  24. TINZAPARIN [Concomitant]
     Active Substance: TINZAPARIN
     Indication: Pulmonary embolism
     Route: 065
     Dates: start: 202412

REACTIONS (9)
  - Neutropenia [Recovered/Resolved]
  - Cytokine release syndrome [Recovered/Resolved]
  - Oesophageal candidiasis [Unknown]
  - Oral candidiasis [Unknown]
  - Weight decreased [Unknown]
  - Quality of life decreased [Unknown]
  - Appetite disorder [Unknown]
  - Fatigue [Recovered/Resolved]
  - Stomatitis [Recovered/Resolved]

NARRATIVE: CASE EVENT DATE: 20250101
